FAERS Safety Report 23825963 (Version 1)
Quarter: 2024Q2

REPORT INFORMATION
  Report Type: Spontaneous
  Country: GR (occurrence: GR)
  Receive Date: 20240507
  Receipt Date: 20240507
  Transmission Date: 20240715
  Serious: Yes (Hospitalization)
  Sender: FDA-Public Use
  Company Number: GR-Ascent Pharmaceuticals, Inc.-2156640

PATIENT
  Age: 54 Year
  Sex: Female

DRUGS (1)
  1. VENLAFAXINE HYDROCHLORIDE [Suspect]
     Active Substance: VENLAFAXINE HYDROCHLORIDE
     Indication: Depression
     Route: 065

REACTIONS (1)
  - Haematoma [Recovered/Resolved]
